FAERS Safety Report 16759715 (Version 5)
Quarter: 2023Q2

REPORT INFORMATION
  Report Type: Spontaneous
  Country: JP (occurrence: JP)
  Receive Date: 20190830
  Receipt Date: 20230406
  Transmission Date: 20230722
  Serious: Yes (Death, Hospitalization, Other)
  Sender: FDA-Public Use
  Company Number: JP-BAYER-2019-153784

PATIENT
  Age: 52 Year
  Sex: Female
  Weight: 58.8 kg

DRUGS (49)
  1. STIVARGA [Interacting]
     Active Substance: REGORAFENIB
     Indication: Rectal cancer stage III
     Dosage: DAILY DOSE 160 MG, 3 WEEKS ON 1 WEEK OFF
     Route: 048
     Dates: start: 20190618, end: 20190624
  2. STIVARGA [Interacting]
     Active Substance: REGORAFENIB
     Indication: Colorectal cancer
     Dosage: DAILY DOSE 160 MG, 3 WEEKS ON 1 WEEK OFF
     Route: 048
     Dates: start: 20190709, end: 20190714
  3. STIVARGA [Interacting]
     Active Substance: REGORAFENIB
     Indication: Rectal cancer stage III
     Dosage: DAILY DOSE 80 MG, 3 WEEKS ON 1 WEEK OFF
     Route: 048
     Dates: start: 20190723, end: 20190806
  4. METHADONE HYDROCHLORIDE [Interacting]
     Active Substance: METHADONE HYDROCHLORIDE
  5. METHADONE HYDROCHLORIDE [Interacting]
     Active Substance: METHADONE HYDROCHLORIDE
     Dosage: 9 DF, TID, EVERY 8 HOURS
     Dates: start: 20190528
  6. METHADONE HYDROCHLORIDE [Interacting]
     Active Substance: METHADONE HYDROCHLORIDE
     Dosage: 11 DF, 3-4-4, 06:00, 14:00, 22:00
     Dates: start: 20190607
  7. METHADONE HYDROCHLORIDE [Interacting]
     Active Substance: METHADONE HYDROCHLORIDE
     Dosage: 12 DF, TID, EVERY 8 HOURS, 06:00, 14:00, 22:00
     Dates: start: 20190618
  8. METHADONE HYDROCHLORIDE [Interacting]
     Active Substance: METHADONE HYDROCHLORIDE
     Dosage: 4 DF, QD
     Dates: start: 20190826
  9. METHADONE HYDROCHLORIDE [Interacting]
     Active Substance: METHADONE HYDROCHLORIDE
     Dosage: 12 DF, TID, EVERY 8 HOURS, 06:00, 14:00, 22:00
     Dates: start: 20190827
  10. FENTANYL [Concomitant]
     Active Substance: FENTANYL
     Dosage: UNK
     Dates: start: 201803
  11. LACTULOSE [Concomitant]
     Active Substance: LACTULOSE
     Dosage: 3 TIMNES A DAY, AFTER EACH MEAL
  12. LACTULOSE [Concomitant]
     Active Substance: LACTULOSE
     Dosage: AT THE TIME OF CONSTIPATION
     Dates: start: 20190822
  13. LACTULOSE [Concomitant]
     Active Substance: LACTULOSE
     Dosage: 3 TIMNES A DAY, AFTER EACH MEAL
     Dates: start: 20190902
  14. LANSOPRAZOLE [Concomitant]
     Active Substance: LANSOPRAZOLE
     Dosage: 1 DF, QD
  15. ALPRAZOLAM [Concomitant]
     Active Substance: ALPRAZOLAM
     Dosage: UNK UNK, TID
  16. ALPRAZOLAM [Concomitant]
     Active Substance: ALPRAZOLAM
     Dosage: 1 DF, QD
     Dates: start: 20190826
  17. CELECOXIB [Concomitant]
     Active Substance: CELECOXIB
     Dosage: UNK UNK, BID
  18. MORPHINE HYDROCHLORIDE [Concomitant]
     Active Substance: MORPHINE HYDROCHLORIDE
     Dosage: AT THE TIME OF PAIN
  19. MAGNESIUM OXIDE [Concomitant]
     Active Substance: MAGNESIUM OXIDE
     Dosage: UNK, TID
  20. MAGNESIUM OXIDE [Concomitant]
     Active Substance: MAGNESIUM OXIDE
     Dosage: 1 DF, QD
     Dates: start: 20190826
  21. MAGNESIUM OXIDE [Concomitant]
     Active Substance: MAGNESIUM OXIDE
     Dosage: UNK, TID
     Dates: start: 20190827
  22. SYMPROIC [Concomitant]
     Active Substance: NALDEMEDINE
     Dosage: 1 DF, QD
  23. HEPARINOID [Concomitant]
     Dosage: APPLICATION TO AFFECTED AREAS SEVERAL TIMES A DAY
  24. HEMOPORISON [Concomitant]
     Dosage: UNK, BID
  25. HEMOPORISON [Concomitant]
     Dosage: AT THE TIME OF PAIN ASSOCIATED WITH HEMORRHOID
     Dates: start: 20190806
  26. CANDESARTAN [Concomitant]
     Active Substance: CANDESARTAN
     Dosage: 1 DF, QD
     Dates: start: 20190625
  27. DIFLUPREDNATE [Concomitant]
     Active Substance: DIFLUPREDNATE
     Dosage: APPLICATION TO ITCHY PARTS
     Dates: start: 20190630
  28. DIFLUPREDNATE [Concomitant]
     Active Substance: DIFLUPREDNATE
     Dosage: APPLICATION TO AFFECTED AREAS TWICE A DAY
     Dates: start: 20190702
  29. BEPOTASTINE BESYLATE [Concomitant]
     Active Substance: BEPOTASTINE BESYLATE
     Dosage: UNK, BID
  30. URSODIOL [Concomitant]
     Active Substance: URSODIOL
     Dosage: UNK, TID
     Dates: start: 20190823
  31. URSODIOL [Concomitant]
     Active Substance: URSODIOL
     Dosage: 2 DF, QD
     Dates: start: 20190913
  32. URSODIOL [Concomitant]
     Active Substance: URSODIOL
     Dosage: UNK, TID
     Dates: start: 20190913
  33. ELOBIXIBAT [Concomitant]
     Active Substance: ELOBIXIBAT
     Dosage: UNK, QD
  34. RIFAXIMIN [Concomitant]
     Active Substance: RIFAXIMIN
     Dosage: UNK, TID
  35. SODIUM PICOSULFATE [Concomitant]
     Active Substance: SODIUM PICOSULFATE
     Dosage: 5-30 DROPS, ADJUST AS APPROPRIATE
  36. POLYETHYLENE GLYCOL\POTASSIUM CHLORIDE\SODIUM BICARBONATE\SODIUM CHLOR [Concomitant]
     Active Substance: POLYETHYLENE GLYCOL\POTASSIUM CHLORIDE\SODIUM BICARBONATE\SODIUM CHLORIDE
     Dosage: UNK, BID
  37. LEVOCARNITINE [Concomitant]
     Active Substance: LEVOCARNITINE
     Dosage: 10 ML, TID
  38. LEVOCARNITINE [Concomitant]
     Active Substance: LEVOCARNITINE
     Dosage: 10 ML, QD
     Dates: start: 20190920
  39. LEVOCARNITINE [Concomitant]
     Active Substance: LEVOCARNITINE
     Dosage: 10 ML, TID
     Dates: start: 20190920
  40. SULFAMETHOXAZOLE\TRIMETHOPRIM [Concomitant]
     Active Substance: SULFAMETHOXAZOLE\TRIMETHOPRIM
     Dosage: 1 G, QD
     Dates: start: 20190918
  41. SODIUM GUALENATE MONOHYDRATE [Concomitant]
     Active Substance: SODIUM GUALENATE MONOHYDRATE
     Dosage: 3 TO 5 TIMES A DAY
  42. FUNGIZONE [Concomitant]
     Active Substance: AMPHOTERICIN B
     Dosage: UNK, TID
     Dates: start: 20190918
  43. ABSTRAL [Concomitant]
     Active Substance: FENTANYL CITRATE
  44. AMITIZA [Concomitant]
     Active Substance: LUBIPROSTONE
     Dosage: 1 DF, BID
     Dates: start: 20190925
  45. WHITE PETROLATUM [Concomitant]
     Active Substance: PETROLATUM
     Dosage: APPLICATION TO AFFECTED AREAS SEVERAL TIMES A DAY
  46. ATOVAQUONE [Concomitant]
     Active Substance: ATOVAQUONE
     Dosage: UNK, QD
     Dates: start: 20190927
  47. OFLOXIN [OFLOXACIN] [Concomitant]
  48. MOSAPRIDE CITRATE [Concomitant]
     Active Substance: MOSAPRIDE CITRATE
     Dosage: UNK, TID
     Dates: start: 20191003
  49. ENEVO [Concomitant]
     Dosage: 1 DF, QD
     Dates: start: 20191004

REACTIONS (15)
  - Acute hepatic failure [Fatal]
  - Pneumonia cytomegaloviral [Fatal]
  - Lymphopenia [Fatal]
  - Respiratory failure [Fatal]
  - Hepatitis fulminant [Not Recovered/Not Resolved]
  - Colorectal cancer recurrent [None]
  - Blood bilirubin increased [Not Recovered/Not Resolved]
  - Alanine aminotransferase increased [Not Recovered/Not Resolved]
  - Aspartate aminotransferase increased [Not Recovered/Not Resolved]
  - Labelled drug-drug interaction medication error [None]
  - Drug interaction [None]
  - International normalised ratio abnormal [Not Recovered/Not Resolved]
  - Ammonia increased [Recovered/Resolved]
  - Rash [Recovered/Resolved]
  - Protein urine present [None]

NARRATIVE: CASE EVENT DATE: 20190101
